FAERS Safety Report 4745138-4 (Version None)
Quarter: 2005Q3

REPORT INFORMATION
  Report Type: 
  Country: None (occurrence: None)
  Receive Date: 20050815
  Receipt Date: 20050803
  Transmission Date: 20060218
  Serious: Yes (Life-Threatening, Hospitalization)
  Sender: FDA-Public Use
  Company Number: JP-ROCHE-413148

PATIENT
  Age: 55 Year
  Sex: Male

DRUGS (5)
  1. CELLCEPT [Suspect]
     Route: 065
  2. TACROLIMUS HYDRATE [Suspect]
     Route: 065
  3. METHYLPREDNISOLONE 16MG TAB [Suspect]
     Route: 065
  4. FOY [Concomitant]
     Indication: THROMBOSIS PROPHYLAXIS
  5. PGE1 [Concomitant]
     Dosage: ADMINISTERED FROM HEPATIC INTRA-ARTERIAL CATHETER FOR CONTINUOUS USE.
     Route: 013

REACTIONS (4)
  - CARDIAC FAILURE [None]
  - HEPATIC ARTERY STENOSIS [None]
  - MYOCARDIAL INFARCTION [None]
  - PORTAL VEIN THROMBOSIS [None]
